FAERS Safety Report 21969952 (Version 1)
Quarter: 2023Q1

REPORT INFORMATION
  Report Type: Report from Study
  Country: US (occurrence: US)
  Receive Date: 20230208
  Receipt Date: 20230208
  Transmission Date: 20230418
  Serious: Yes (Other)
  Sender: FDA-Public Use
  Company Number: US-ABBVIE-22K-163-4437008-00

PATIENT
  Age: 51 Year
  Sex: Female

DRUGS (3)
  1. HUMIRA [Suspect]
     Active Substance: ADALIMUMAB
     Indication: Psoriatic arthropathy
     Dosage: CITRATE FREE
     Route: 058
  2. HUMIRA [Suspect]
     Active Substance: ADALIMUMAB
     Dosage: CITRATE FREE
     Route: 058
     Dates: start: 202301
  3. PFIZER-BIONTECH COVID-19 VACCINE [Concomitant]
     Active Substance: TOZINAMERAN
     Indication: COVID-19 immunisation
     Dosage: TIME INTERVAL: 1 TOTAL
     Route: 030

REACTIONS (8)
  - Blindness unilateral [Unknown]
  - Arthropathy [Unknown]
  - Psoriasis [Recovering/Resolving]
  - Pain [Not Recovered/Not Resolved]
  - Pseudomonas infection [Recovering/Resolving]
  - COVID-19 [Unknown]
  - Joint swelling [Unknown]
  - Scar [Unknown]

NARRATIVE: CASE EVENT DATE: 20220801
